FAERS Safety Report 6987449-8 (Version None)
Quarter: 2010Q3

REPORT INFORMATION
  Report Type: 
  Country: None (occurrence: None)
  Receive Date: 20100916
  Receipt Date: 20100909
  Transmission Date: 20110219
  Serious: Yes (Hospitalization)
  Sender: FDA-Public Use
  Company Number: FR-BRISTOL-MYERS SQUIBB COMPANY-15282585

PATIENT
  Age: 41 Year
  Sex: Male

DRUGS (3)
  1. ABILIFY [Suspect]
     Indication: AFFECTIVE DISORDER
     Route: 048
     Dates: start: 20100702
  2. EFFEXOR [Suspect]
     Indication: DEPRESSION
     Route: 048
     Dates: start: 20100701
  3. LIORESAL [Suspect]
     Dates: start: 20100705, end: 20100715

REACTIONS (2)
  - DYSURIA [None]
  - EJACULATION FAILURE [None]
